FAERS Safety Report 6137982-6 (Version None)
Quarter: 2009Q1

REPORT INFORMATION
  Report Type: 
  Country: None (occurrence: None)
  Receive Date: 20090331
  Receipt Date: 20090319
  Transmission Date: 20090719
  Serious: Yes (Hospitalization)
  Sender: FDA-Public Use
  Company Number: RU-ROCHE-622589

PATIENT
  Age: 38 Year
  Sex: Male

DRUGS (3)
  1. TAMIFLU [Suspect]
     Indication: INFLUENZA
     Route: 048
     Dates: start: 20090316, end: 20090316
  2. BARALGIN [Concomitant]
  3. IBUPROFEN TABLETS [Concomitant]

REACTIONS (4)
  - CONTUSION [None]
  - JOINT SWELLING [None]
  - PAIN IN EXTREMITY [None]
  - RASH [None]
